FAERS Safety Report 25374523 (Version 1)
Quarter: 2025Q2

REPORT INFORMATION
  Report Type: Report from Study
  Country: CA (occurrence: CA)
  Receive Date: 20250529
  Receipt Date: 20250529
  Transmission Date: 20250717
  Serious: Yes (Other)
  Sender: BAUSCH AND LOMB
  Company Number: CA-BAUSCH-BL-2025-002521

PATIENT
  Age: 52 Year
  Sex: Male

DRUGS (2)
  1. SILIQ [Suspect]
     Active Substance: BRODALUMAB
     Indication: Psoriasis
     Dosage: 210 MG/1.5 ML (WEEK 0, 1 AND 2)
     Route: 058
     Dates: start: 20241129, end: 202412
  2. SILIQ [Suspect]
     Active Substance: BRODALUMAB
     Dosage: 210 MG/1.5 ML Q2 WEEKS
     Route: 058
     Dates: end: 2025

REACTIONS (2)
  - Arthritis reactive [Unknown]
  - Therapeutic product effect incomplete [Unknown]
